FAERS Safety Report 8585020-8 (Version None)
Quarter: 2012Q3

REPORT INFORMATION
  Report Type: 
  Country: None (occurrence: None)
  Receive Date: 20120810
  Receipt Date: 20120801
  Transmission Date: 20120928
  Serious: Yes (Death, Hospitalization)
  Sender: FDA-Public Use
  Company Number: IT-CELGENEUS-083-21880-11113556

PATIENT
  Sex: Female

DRUGS (5)
  1. DEXAMETHASONE [Concomitant]
     Route: 065
  2. COUMADIN [Concomitant]
     Route: 065
  3. DEXAMETHASONE [Concomitant]
     Indication: IMMUNOSUPPRESSION
  4. REVLIMID [Suspect]
     Route: 048
     Dates: start: 20100407, end: 20100415
  5. REVLIMID [Suspect]
     Route: 048
     Dates: start: 20091113

REACTIONS (2)
  - HERPES ZOSTER [None]
  - LYMPHOMA [None]
